FAERS Safety Report 24424962 (Version 1)
Quarter: 2024Q4

REPORT INFORMATION
  Report Type: Report from Study
  Country: US (occurrence: US)
  Receive Date: 20241010
  Receipt Date: 20241010
  Transmission Date: 20250114
  Serious: Yes (Hospitalization, Other)
  Sender: ALEXION PHARMACEUTICALS
  Company Number: US-ALXN-A202100310AA

PATIENT

DRUGS (4)
  1. STRENSIQ [Suspect]
     Active Substance: ASFOTASE ALFA
     Indication: Hypophosphatasia
     Dosage: UNK
     Route: 065
  2. STRENSIQ [Suspect]
     Active Substance: ASFOTASE ALFA
     Dosage: UNK
  3. STRENSIQ [Suspect]
     Active Substance: ASFOTASE ALFA
     Dosage: UNK
     Route: 065
  4. STRENSIQ [Suspect]
     Active Substance: ASFOTASE ALFA
     Dosage: UNK

REACTIONS (48)
  - Post procedural complication [Recovering/Resolving]
  - Bile duct stone [Recovering/Resolving]
  - Gangrene [Unknown]
  - Hepatomegaly [Unknown]
  - Splenomegaly [Unknown]
  - Autoimmune disorder [Unknown]
  - Haemorrhage [Unknown]
  - Nephrolithiasis [Unknown]
  - Back pain [Unknown]
  - Arthritis [Unknown]
  - Throat irritation [Unknown]
  - Nodule [Unknown]
  - Migraine [Unknown]
  - Blood testosterone increased [Unknown]
  - Depressed mood [Unknown]
  - Hyperthecosis [Unknown]
  - Weight increased [Unknown]
  - Product administration error [Recovered/Resolved]
  - Vomiting [Unknown]
  - Procedural pain [Recovering/Resolving]
  - Fatigue [Unknown]
  - Wound [Unknown]
  - Dyspnoea [Unknown]
  - Swelling [Unknown]
  - Abdominal pain [Unknown]
  - Infection [Unknown]
  - Hernia [Unknown]
  - Gastrointestinal disorder [Unknown]
  - Blood pressure decreased [Unknown]
  - Product dose omission issue [Unknown]
  - Blood test abnormal [Unknown]
  - Muscle spasms [Unknown]
  - Cholelithiasis [Unknown]
  - Abdominal adhesions [Unknown]
  - Arthralgia [Unknown]
  - Stress [Unknown]
  - Joint swelling [Unknown]
  - Bruxism [Unknown]
  - Scoliosis [Unknown]
  - Mineral metabolism disorder [Unknown]
  - Blood folate increased [Unknown]
  - Ear pain [Unknown]
  - Balance disorder [Unknown]
  - Injection site haemorrhage [Unknown]
  - Pain in extremity [Unknown]
  - Nausea [Unknown]
  - Injection site pain [Unknown]
  - Scar [Unknown]
